FAERS Safety Report 22534619 (Version 3)
Quarter: 2024Q3

REPORT INFORMATION
  Report Type: Spontaneous
  Country: US (occurrence: US)
  Receive Date: 20230608
  Receipt Date: 20240726
  Transmission Date: 20241016
  Serious: Yes (Death)
  Sender: PAREXEL
  Company Number: US-AVEO ONCOLOGY-2023-AVEO-US000443

PATIENT

DRUGS (2)
  1. FOTIVDA [Suspect]
     Active Substance: TIVOZANIB HYDROCHLORIDE
     Indication: Renal cell carcinoma
     Dosage: 1.34 MG, DAILY FOR 21 DAYS WITH 7 DAYS OFF (28-DAY CYCLE)
     Route: 048
     Dates: start: 20230405, end: 20230427
  2. MS CONTIN [Concomitant]
     Active Substance: MORPHINE SULFATE

REACTIONS (1)
  - Disease progression [Fatal]

NARRATIVE: CASE EVENT DATE: 20230527
